FAERS Safety Report 7553790-3 (Version None)
Quarter: 2011Q2

REPORT INFORMATION
  Report Type: 
  Country: None (occurrence: None)
  Receive Date: 20110614
  Receipt Date: 20110614
  Transmission Date: 20111010
  Serious: Yes (Hospitalization)
  Sender: FDA-Public Use
  Company Number: None

PATIENT
  Sex: Female
  Weight: 95 kg

DRUGS (10)
  1. ALENDRONATE SODIUM [Suspect]
     Dosage: 70MG WEEKLY PO 8 YEARS PER PT
     Route: 048
  2. SYNTHROID [Concomitant]
  3. METHADONE HCL [Concomitant]
  4. NEURONTIN [Concomitant]
  5. OMEPRAZOLE [Concomitant]
  6. OXYCODONE HCL [Concomitant]
  7. FUROSEMIDE [Concomitant]
  8. ALENDRONATE SODIUM [Concomitant]
  9. POTASSIUM CHLORIDE [Concomitant]
  10. TRAZODONE HCL [Concomitant]

REACTIONS (3)
  - FEMUR FRACTURE [None]
  - INCORRECT DRUG ADMINISTRATION DURATION [None]
  - FALL [None]
